FAERS Safety Report 4729058-7 (Version None)
Quarter: 2005Q3

REPORT INFORMATION
  Report Type: 
  Country: None (occurrence: None)
  Receive Date: 20050729
  Receipt Date: 20050302
  Transmission Date: 20060218
  Serious: No
  Sender: FDA-Public Use
  Company Number: US-GLAXOSMITHKLINE-A0547953A

PATIENT
  Age: 53 Year
  Sex: Female

DRUGS (8)
  1. IMITREX [Suspect]
     Indication: MIGRAINE
     Dosage: 100MG AS REQUIRED
     Route: 048
  2. IMITREX [Suspect]
     Route: 058
  3. CLINDAMYCIN [Concomitant]
  4. CELEBREX [Concomitant]
  5. VALTREX [Concomitant]
  6. THYROID TAB [Concomitant]
  7. DOXYCYCLINE [Concomitant]
  8. VICODIN [Concomitant]

REACTIONS (3)
  - CONJUNCTIVAL DISCOLOURATION [None]
  - SKIN DISCOLOURATION [None]
  - TOOTH DISCOLOURATION [None]
